FAERS Safety Report 10233256 (Version 1)
Quarter: 2014Q2

REPORT INFORMATION
  Report Type: Spontaneous
  Country: CA (occurrence: CA)
  Receive Date: 20140612
  Receipt Date: 20140612
  Transmission Date: 20141212
  Serious: Yes (Hospitalization)
  Sender: FDA-Public Use
  Company Number: PHHY2014CA068835

PATIENT
  Age: 59 Year
  Sex: Male
  Weight: 72 kg

DRUGS (6)
  1. OLANZAPINE SANDOZ [Suspect]
     Dosage: 5 MG, QD
  2. ACETAMINOPHEN [Concomitant]
  3. ELAVIL [Concomitant]
  4. PANTOPRAZOLE SODIUM [Concomitant]
  5. REMERON [Concomitant]
  6. SPIRIVA [Concomitant]

REACTIONS (7)
  - Arthralgia [Recovered/Resolved]
  - Dysuria [Recovered/Resolved]
  - Mastication disorder [Recovered/Resolved]
  - Myalgia [Recovered/Resolved]
  - Oropharyngeal pain [Recovered/Resolved]
  - Pyrexia [Recovered/Resolved]
  - Rhabdomyolysis [Recovered/Resolved]
